FAERS Safety Report 7762796-0 (Version None)
Quarter: 2011Q3

REPORT INFORMATION
  Report Type: 
  Country: None (occurrence: None)
  Receive Date: 20110920
  Receipt Date: 20110915
  Transmission Date: 20111222
  Serious: Yes (Hospitalization)
  Sender: FDA-Public Use
  Company Number: JP-BRISTOL-MYERS SQUIBB COMPANY-14890149

PATIENT
  Age: 73 Year
  Sex: Male
  Weight: 55 kg

DRUGS (3)
  1. POLARAMINE [Concomitant]
     Indication: PREMEDICATION
     Route: 042
     Dates: start: 20080925, end: 20080925
  2. ERBITUX [Suspect]
     Indication: COLON CANCER
     Route: 042
     Dates: start: 20080925, end: 20080925
  3. DEXAMETHASONE SODIUM PHOSPHATE [Concomitant]
     Indication: PREMEDICATION
     Route: 042
     Dates: start: 20080925, end: 20080925

REACTIONS (1)
  - CEREBRAL INFARCTION [None]
